APPROVED DRUG PRODUCT: YOSPRALA
Active Ingredient: ASPIRIN; OMEPRAZOLE
Strength: 81MG;40MG
Dosage Form/Route: TABLET, DELAYED RELEASE;ORAL
Application: N205103 | Product #001
Applicant: GENUS LIFE SCIENCES INC
Approved: Sep 14, 2016 | RLD: Yes | RS: No | Type: DISCN

PATENTS:
Patent 9539214 | Expires: Mar 13, 2033
Patent 9987231 | Expires: Jan 2, 2033